FAERS Safety Report 4318018-6 (Version None)
Quarter: 2004Q1

REPORT INFORMATION
  Report Type: 
  Country: None (occurrence: None)
  Receive Date: 20040316
  Receipt Date: 20040312
  Transmission Date: 20041129
  Serious: Yes (Hospitalization)
  Sender: FDA-Public Use
  Company Number: WAES 0403CHE00022

PATIENT
  Age: 80 Year
  Sex: Male
  Weight: 100 kg

DRUGS (13)
  1. ACENOCOUMAROL [Suspect]
     Indication: CARDIAC FAILURE
     Route: 048
     Dates: end: 20040306
  2. CLONAZEPAM [Concomitant]
     Indication: NEUROPATHY
     Route: 048
     Dates: start: 20040115
  3. DIGOXIN [Concomitant]
     Indication: CARDIAC FAILURE
     Route: 048
  4. VASOTEC [Concomitant]
     Indication: CARDIAC FAILURE
     Route: 048
  5. GLIMEPIRIDE [Concomitant]
     Indication: DIABETES MELLITUS NON-INSULIN-DEPENDENT
     Route: 048
     Dates: end: 20040306
  6. LEVOTHYROXINE SODIUM [Concomitant]
     Indication: HYPOTHYROIDISM
     Route: 048
  7. METHYLPREDNISOLONE ACETATE [Suspect]
     Indication: BACK PAIN
     Route: 051
     Dates: start: 20031101, end: 20031231
  8. METHYLPREDNISOLONE ACETATE [Suspect]
     Indication: NEUROPATHY
     Route: 051
     Dates: start: 20031101, end: 20031231
  9. MOLSIDOMINE [Concomitant]
     Indication: CARDIAC FAILURE
     Route: 048
  10. NITROGLYCERIN [Concomitant]
     Indication: CARDIAC FAILURE
     Route: 048
  11. VIOXX [Suspect]
     Indication: ARTHRALGIA
     Route: 048
     Dates: start: 20040125, end: 20040206
  12. SPIRONOLACTONE [Concomitant]
     Indication: CARDIAC FAILURE
     Route: 048
  13. TORSEMIDE [Concomitant]
     Indication: CARDIAC FAILURE
     Route: 048
     Dates: start: 20040115, end: 20040306

REACTIONS (5)
  - ANAEMIA [None]
  - DYSPNOEA [None]
  - GASTRITIS EROSIVE [None]
  - MELAENA [None]
  - PALLOR [None]
